FAERS Safety Report 21717768 (Version 1)
Quarter: 2022Q4

REPORT INFORMATION
  Report Type: Report from Study
  Country: US (occurrence: US)
  Receive Date: 20221212
  Receipt Date: 20221212
  Transmission Date: 20230113
  Serious: Yes (Other)
  Sender: FDA-Public Use
  Company Number: US-ALLERGAN-2240645US

PATIENT
  Sex: Male

DRUGS (1)
  1. LINACLOTIDE [Suspect]
     Active Substance: LINACLOTIDE
     Indication: Product used for unknown indication
     Dosage: 290 ?G, QD
     Route: 048
     Dates: start: 202204

REACTIONS (3)
  - Neoplasm malignant [Not Recovered/Not Resolved]
  - Adverse event [Unknown]
  - Circumstance or information capable of leading to medication error [Unknown]
